FAERS Safety Report 11338852 (Version 1)
Quarter: 2015Q3

REPORT INFORMATION
  Report Type: Spontaneous
  Country: US (occurrence: US)
  Receive Date: 20150803
  Receipt Date: 20150803
  Transmission Date: 20151125
  Serious: No
  Sender: FDA-Public Use
  Company Number: US-ELI_LILLY_AND_COMPANY-US200809000342

PATIENT
  Age: 42 Year
  Sex: Female
  Weight: 44.44 kg

DRUGS (4)
  1. STRATTERA [Suspect]
     Active Substance: ATOMOXETINE HYDROCHLORIDE
     Indication: AMNESIA
     Dosage: 40 MG, DAILY (1/D)
     Dates: start: 20080801, end: 20080803
  2. KLONOPIN [Interacting]
     Active Substance: CLONAZEPAM
     Dates: start: 2006
  3. ADDERALL [Interacting]
     Active Substance: AMPHETAMINE ASPARTATE\AMPHETAMINE SULFATE\DEXTROAMPHETAMINE SACCHARATE\DEXTROAMPHETAMINE SULFATE
     Indication: ATTENTION DEFICIT/HYPERACTIVITY DISORDER
     Dosage: UNK, UNK
     Dates: start: 2006
  4. STRATTERA [Interacting]
     Active Substance: ATOMOXETINE HYDROCHLORIDE
     Dosage: 80 MG, EACH MORNING
     Dates: start: 20080804

REACTIONS (17)
  - Crying [Not Recovered/Not Resolved]
  - Drop attacks [Not Recovered/Not Resolved]
  - Mental disorder [Not Recovered/Not Resolved]
  - Obsessive thoughts [Unknown]
  - Suicidal ideation [Recovered/Resolved]
  - Drug interaction [Unknown]
  - Weight decreased [Not Recovered/Not Resolved]
  - Eating disorder [Not Recovered/Not Resolved]
  - Anxiety [Not Recovered/Not Resolved]
  - Drug ineffective [Not Recovered/Not Resolved]
  - Depressed mood [Not Recovered/Not Resolved]
  - Speech disorder [Not Recovered/Not Resolved]
  - Emotional disorder [Unknown]
  - Headache [Not Recovered/Not Resolved]
  - Panic attack [Not Recovered/Not Resolved]
  - Feeling abnormal [Not Recovered/Not Resolved]
  - Menometrorrhagia [Not Recovered/Not Resolved]

NARRATIVE: CASE EVENT DATE: 200808
